FAERS Safety Report 5857244-1 (Version None)
Quarter: 2008Q3

REPORT INFORMATION
  Report Type: 
  Country: None (occurrence: None)
  Receive Date: 20080821
  Receipt Date: 20080818
  Transmission Date: 20090109
  Serious: Yes (Hospitalization, Other)
  Sender: FDA-Public Use
  Company Number: LTI2007A00286

PATIENT
  Age: 58 Year
  Sex: Female

DRUGS (2)
  1. ACTOS [Suspect]
     Indication: TYPE 2 DIABETES MELLITUS
     Dosage: (30 MG, 1 D), ORAL
     Route: 048
     Dates: start: 20060101, end: 20070901
  2. PROTELOS (STRONTIUM RANELATE) [Concomitant]

REACTIONS (2)
  - FALL [None]
  - FEMORAL NECK FRACTURE [None]
